FAERS Safety Report 6908304-5 (Version None)
Quarter: 2010Q3

REPORT INFORMATION
  Report Type: 
  Country: None (occurrence: None)
  Receive Date: 20100805
  Receipt Date: 20100729
  Transmission Date: 20110219
  Serious: Yes (Death, Hospitalization)
  Sender: FDA-Public Use
  Company Number: US-ROCHE-718383

PATIENT
  Age: 4 Year
  Sex: Male
  Weight: 16.9 kg

DRUGS (2)
  1. BEVACIZUMAB [Suspect]
     Indication: EPENDYMOMA
     Route: 042
     Dates: start: 20100719
  2. LAPATINIB [Suspect]
     Indication: EPENDYMOMA
     Route: 048
     Dates: start: 20100719, end: 20100722

REACTIONS (6)
  - ATAXIA [None]
  - DECREASED APPETITE [None]
  - DIARRHOEA [None]
  - DISEASE PROGRESSION [None]
  - DYSPNOEA [None]
  - HEMIPARESIS [None]
